FAERS Safety Report 9328058 (Version 1)
Quarter: 2013Q2

REPORT INFORMATION
  Report Type: Spontaneous
  Country: US (occurrence: US)
  Receive Date: 20130604
  Receipt Date: 20130604
  Transmission Date: 20140414
  Serious: Yes (Hospitalization)
  Sender: FDA-Public Use
  Company Number: US-BANPHARM-20131355

PATIENT
  Age: 38 Year
  Sex: Female

DRUGS (1)
  1. IBUPROFEN UNKNOWN PRODUCT [Suspect]
     Indication: ARTHRALGIA
     Dosage: 600 - 800 MG, PRN,

REACTIONS (3)
  - Hepatitis [Recovered/Resolved]
  - Meningitis [Recovered/Resolved]
  - Renal failure acute [Recovered/Resolved]
